FAERS Safety Report 8763970 (Version 3)
Quarter: 2015Q1

REPORT INFORMATION
  Report Type: Spontaneous
  Country: US (occurrence: US)
  Receive Date: 20120831
  Receipt Date: 20150319
  Transmission Date: 20150721
  Serious: Yes (Other)
  Sender: FDA-Public Use
  Company Number: US-JNJFOC-20070200880

PATIENT
  Age: 29 Year
  Sex: Female

DRUGS (3)
  1. RISPERDAL [Suspect]
     Active Substance: RISPERIDONE
     Indication: ANXIETY
     Dates: end: 20060919
  2. RISPERDAL [Suspect]
     Active Substance: RISPERIDONE
     Indication: PARANOIA
     Dates: end: 20060919
  3. RISPERDAL [Suspect]
     Active Substance: RISPERIDONE
     Indication: DELUSIONAL DISORDER, UNSPECIFIED TYPE
     Dates: end: 20060919

REACTIONS (7)
  - Weight increased [Recovering/Resolving]
  - Breast cancer [Unknown]
  - Tardive dyskinesia [Unknown]
  - Diabetic foot [Recovered/Resolved]
  - Diabetes mellitus [Recovering/Resolving]
  - Galactorrhoea [Unknown]
  - Blood prolactin increased [Unknown]

NARRATIVE: CASE EVENT DATE: 199609
